FAERS Safety Report 4611162-5 (Version None)
Quarter: 2005Q1

REPORT INFORMATION
  Report Type: 
  Country: None (occurrence: None)
  Receive Date: 20050317
  Receipt Date: 20050309
  Transmission Date: 20050727
  Serious: Yes (Congenital Anomaly)
  Sender: FDA-Public Use
  Company Number: US-JNJFOC-20050302866

PATIENT

DRUGS (4)
  1. TOPAMAX [Suspect]
     Route: 064
  2. PRIMIDONE [Concomitant]
  3. PHENOBARBITAL [Concomitant]
  4. FOLIC ACID [Concomitant]

REACTIONS (2)
  - CLEFT PALATE [None]
  - DRUG EXPOSURE DURING PREGNANCY [None]
